FAERS Safety Report 14364802 (Version 1)
Quarter: 2018Q1

REPORT INFORMATION
  Report Type: Spontaneous
  Country: US (occurrence: US)
  Receive Date: 20180107
  Receipt Date: 20180107
  Transmission Date: 20180509
  Serious: Yes (Disabling)
  Sender: FDA-Public Use
  Company Number: None

PATIENT
  Age: 37 Year
  Sex: Female
  Weight: 74.25 kg

DRUGS (3)
  1. BUPROPRION [Concomitant]
     Active Substance: BUPROPION
  2. LAMOTRIGINE. [Suspect]
     Active Substance: LAMOTRIGINE
     Indication: DEPRESSION
     Dosage: ?          QUANTITY:1 TABLET(S);?
     Route: 048
     Dates: start: 20171208, end: 20171220
  3. LAMOTRIGINE. [Suspect]
     Active Substance: LAMOTRIGINE
     Indication: BIPOLAR DISORDER
     Dosage: ?          QUANTITY:1 TABLET(S);?
     Route: 048
     Dates: start: 20171208, end: 20171220

REACTIONS (12)
  - Nausea [None]
  - Stevens-Johnson syndrome [None]
  - Suicidal ideation [None]
  - Therapy change [None]
  - Dizziness [None]
  - Anger [None]
  - Decreased appetite [None]
  - Stomatitis [None]
  - Inability to afford medication [None]
  - Vertigo [None]
  - Disorientation [None]
  - Product substitution issue [None]

NARRATIVE: CASE EVENT DATE: 20171220
